FAERS Safety Report 7230195-6 (Version None)
Quarter: 2011Q1

REPORT INFORMATION
  Report Type: 
  Country: None (occurrence: None)
  Receive Date: 20110118
  Receipt Date: 20110107
  Transmission Date: 20110831
  Serious: Yes (Other)
  Sender: FDA-Public Use
  Company Number: US-JNJFOC-20110102794

PATIENT
  Sex: Female

DRUGS (2)
  1. EXTRA STRENGTH TYLENOL PM [Suspect]
     Indication: PAIN
     Route: 065
  2. EXTRA STRENGTH TYLENOL PM [Suspect]
     Indication: INSOMNIA
     Route: 065

REACTIONS (1)
  - LOSS OF CONSCIOUSNESS [None]
